FAERS Safety Report 19997412 (Version 1)
Quarter: 2021Q4

REPORT INFORMATION
  Report Type: Spontaneous
  Country: US (occurrence: US)
  Receive Date: 20211026
  Receipt Date: 20211026
  Transmission Date: 20220303
  Serious: No
  Sender: FDA-Public Use
  Company Number: US-TEVA-2021-US-1968446

PATIENT

DRUGS (1)
  1. NIACIN [Suspect]
     Active Substance: NIACIN
     Route: 065

REACTIONS (2)
  - Blood pressure increased [Unknown]
  - Drug hypersensitivity [Unknown]
